FAERS Safety Report 9496729 (Version 2)
Quarter: 2013Q3

REPORT INFORMATION
  Report Type: Report from Study
  Country: US (occurrence: US)
  Receive Date: 20130904
  Receipt Date: 20130904
  Transmission Date: 20140515
  Serious: Yes (Hospitalization)
  Sender: FDA-Public Use
  Company Number: US-CELGENEUS-163-21880-12071477

PATIENT
  Age: 64 Year
  Sex: Male
  Weight: 94.16 kg

DRUGS (29)
  1. REVLIMID [Suspect]
     Indication: PLASMA CELL MYELOMA
     Dosage: 25 MILLIGRAM
     Route: 048
     Dates: start: 20101109, end: 20110808
  2. REVLIMID [Suspect]
     Dosage: 25 MILLIGRAM
     Route: 048
     Dates: start: 20110913, end: 20111003
  3. REVLIMID [Suspect]
     Dosage: 25 MILLIGRAM
     Route: 048
     Dates: start: 20111108, end: 20111128
  4. REVLIMID [Suspect]
     Dosage: 15 MILLIGRAM
     Route: 048
     Dates: start: 20111213, end: 20120806
  5. CARFILZOMIB [Suspect]
     Indication: PLASMA CELL MYELOMA
     Dosage: 40 MILLIGRAM
     Route: 065
     Dates: start: 20101109
  6. CARFILZOMIB [Suspect]
     Dosage: 54 MILLIGRAM
     Route: 065
     Dates: start: 20101116, end: 20120314
  7. DEXAMETHASONE [Suspect]
     Indication: PLASMA CELL MYELOMA
     Dosage: 40 MILLIGRAM
     Route: 065
     Dates: start: 20101109, end: 20111004
  8. DEXAMETHASONE [Suspect]
     Dosage: 40 MILLIGRAM
     Route: 065
     Dates: start: 20111108, end: 20120807
  9. ACYCLOVIR [Concomitant]
     Indication: ANTIVIRAL PROPHYLAXIS
     Dosage: 800 MILLIGRAM
     Route: 048
     Dates: start: 20081230
  10. AMOXICILLIN [Concomitant]
     Indication: DENTAL OPERATION
     Dosage: 500 MILLIGRAM
     Route: 048
     Dates: start: 20110921
  11. ASPIRIN [Concomitant]
     Indication: ANTICOAGULANT THERAPY
     Dosage: 81 MILLIGRAM
     Route: 048
     Dates: start: 20110104
  12. ASPIRIN [Concomitant]
     Indication: ANTIPLATELET THERAPY
  13. BENADRYL [Concomitant]
     Indication: INSOMNIA
     Route: 048
     Dates: start: 20110104
  14. CALCIUM+VITAMIN D [Concomitant]
     Indication: NUTRITIONAL SUPPLEMENTATION
     Dosage: 1200 MILLIGRAM
     Route: 048
     Dates: start: 200707
  15. CLOTRIMAZOLE [Concomitant]
     Indication: ORAL CANDIDIASIS
     Dosage: 30 MILLIGRAM
     Route: 048
     Dates: start: 20101101
  16. LOVENOX [Concomitant]
     Indication: DEEP VEIN THROMBOSIS
     Dosage: 120 MILLIGRAM
     Route: 058
     Dates: start: 20110301
  17. MULTIVITAMINS [Concomitant]
     Indication: NUTRITIONAL SUPPLEMENTATION
     Route: 048
  18. NEUPOGEN [Concomitant]
     Indication: NEUTROPENIA
     Route: 058
     Dates: start: 20101230
  19. NORMAL SALINE [Concomitant]
     Indication: PREMEDICATION
     Route: 041
     Dates: start: 20110104
  20. NORMAL SALINE [Concomitant]
     Indication: FLUID REPLACEMENT
  21. OMEPRAZOLE [Concomitant]
     Indication: GASTROINTESTINAL DISORDER
     Dosage: 20 MILLIGRAM
     Route: 048
     Dates: start: 20090112
  22. OXYCODONE [Concomitant]
     Indication: BACK PAIN
     Route: 048
     Dates: start: 20090505
  23. COUMADIN [Concomitant]
     Indication: MYOCARDIAL INFARCTION
     Dosage: 10 MILLIGRAM
     Route: 048
     Dates: start: 20120530
  24. LISINOPRIL [Concomitant]
     Indication: MYOCARDIAL INFARCTION
     Dosage: 5 MILLIGRAM
     Route: 048
     Dates: start: 20120530
  25. LIVALO [Concomitant]
     Indication: MYOCARDIAL INFARCTION
     Dosage: 2 MILLIGRAM
     Route: 048
     Dates: start: 20120615
  26. LOPRESSOR [Concomitant]
     Indication: MYOCARDIAL INFARCTION
     Dosage: 100 MILLIGRAM
     Route: 048
     Dates: start: 20120530, end: 20120611
  27. LOPRESSOR [Concomitant]
     Dosage: 50 MILLIGRAM
     Route: 048
     Dates: start: 20120612
  28. PLAVIX [Concomitant]
     Indication: MYOCARDIAL INFARCTION
     Dosage: 75 MILLIGRAM
     Route: 048
     Dates: start: 20120530
  29. KLONOPIN [Concomitant]
     Indication: NEUROPATHY PERIPHERAL
     Route: 048
     Dates: start: 20111206

REACTIONS (1)
  - Cardiac disorder [Recovered/Resolved]
